FAERS Safety Report 13168500 (Version 2)
Quarter: 2017Q1

REPORT INFORMATION
  Report Type: Spontaneous
  Country: BR (occurrence: BR)
  Receive Date: 20170131
  Receipt Date: 20170222
  Transmission Date: 20170428
  Serious: Yes (Life-Threatening, Other)
  Sender: FDA-Public Use
  Company Number: PHHY2017BR009454

PATIENT
  Age: 59 Year
  Sex: Female

DRUGS (2)
  1. CIPROFLOXACIN SANDOZ [Suspect]
     Active Substance: CIPROFLOXACIN
     Indication: URINARY TRACT INFECTION
     Dosage: 500 MG, Q12H
     Route: 048
  2. CAPTOPRI [Concomitant]
     Indication: BLOOD PRESSURE INCREASED
     Route: 065

REACTIONS (4)
  - Headache [Unknown]
  - Apparent death [Unknown]
  - Pain [Unknown]
  - Hypertension [Unknown]
